FAERS Safety Report 17846295 (Version 1)
Quarter: 2020Q2

REPORT INFORMATION
  Report Type: Spontaneous
  Country: US (occurrence: US)
  Receive Date: 20200601
  Receipt Date: 20200601
  Transmission Date: 20200714
  Serious: No
  Sender: FDA-Public Use
  Company Number: None

PATIENT
  Age: 73 Year
  Sex: Male
  Weight: 76.95 kg

DRUGS (5)
  1. METAPROLOL [Concomitant]
     Active Substance: METOPROLOL
  2. MULTI VITAMIN [Concomitant]
     Active Substance: VITAMINS
  3. FISH OIL [Concomitant]
     Active Substance: FISH OIL
  4. AMOX-CLAV 875-125 GENERIC FOR AUGMENTIN [Suspect]
     Active Substance: AMOXICILLIN\CLAVULANATE POTASSIUM
     Indication: ULCER
     Dosage: ?          QUANTITY:28 TABLET(S);?
     Route: 048
     Dates: start: 20200518, end: 20200521
  5. FOSINOPRIL [Concomitant]
     Active Substance: FOSINOPRIL

REACTIONS (4)
  - Abdominal pain upper [None]
  - Liver injury [None]
  - Alanine aminotransferase increased [None]
  - Aspartate aminotransferase increased [None]

NARRATIVE: CASE EVENT DATE: 20200526
